FAERS Safety Report 7878616-X (Version None)
Quarter: 2011Q4

REPORT INFORMATION
  Report Type: 
  Country: None (occurrence: None)
  Receive Date: 20111028
  Receipt Date: 20111014
  Transmission Date: 20120403
  Serious: Yes (Death)
  Sender: FDA-Public Use
  Company Number: 2011MA013456

PATIENT
  Age: 74 Year
  Sex: Male

DRUGS (2)
  1. VINORELBINE [Suspect]
     Indication: SQUAMOUS CELL CARCINOMA
  2. PREDNISOLONE [Suspect]
     Dosage: 10 MG;QD

REACTIONS (3)
  - INTERSTITIAL LUNG DISEASE [None]
  - RESPIRATORY FAILURE [None]
  - CONDITION AGGRAVATED [None]
